FAERS Safety Report 5508879-7 (Version None)
Quarter: 2007Q4

REPORT INFORMATION
  Report Type: 
  Country: None (occurrence: None)
  Receive Date: 20071031
  Receipt Date: 20071010
  Transmission Date: 20080405
  Serious: Yes (Other)
  Sender: FDA-Public Use
  Company Number: 200712799BWH

PATIENT
  Age: 67 Year
  Sex: Male
  Weight: 81.6475 kg

DRUGS (11)
  1. NEXAVAR [Suspect]
     Indication: THYROID CANCER METASTATIC
     Dosage: 400 MG, BID, ORAL, 200 MG, BID, ORAL
     Route: 048
     Dates: start: 20070801, end: 20070809
  2. NEXAVAR [Suspect]
     Indication: THYROID CANCER METASTATIC
     Dosage: 400 MG, BID, ORAL, 200 MG, BID, ORAL
     Route: 048
     Dates: start: 20070810, end: 20070812
  3. ZOMETA [Concomitant]
  4. LEVOTHROID [Concomitant]
  5. METOPROLOL [Concomitant]
  6. OXYCODONE HCL [Concomitant]
  7. ASPIRIN [Concomitant]
  8. AMITRIPTLINE HCL [Concomitant]
  9. PROTONIX [Concomitant]
  10. PROCHLORPERAZINE [Concomitant]
  11. GLYCOLAX [Concomitant]

REACTIONS (14)
  - ANGIOEDEMA [None]
  - ASTHENIA [None]
  - EATING DISORDER [None]
  - GINGIVAL RECESSION [None]
  - PAIN IN EXTREMITY [None]
  - PHARYNGEAL OEDEMA [None]
  - PHARYNGOLARYNGEAL PAIN [None]
  - RASH [None]
  - RASH PAPULAR [None]
  - SKIN EXFOLIATION [None]
  - SWELLING FACE [None]
  - SWOLLEN TONGUE [None]
  - VOMITING [None]
  - WEIGHT DECREASED [None]
